FAERS Safety Report 19438836 (Version 2)
Quarter: 2021Q2

REPORT INFORMATION
  Report Type: Report from Study
  Country: US (occurrence: US)
  Receive Date: 20210618
  Receipt Date: 20210623
  Transmission Date: 20210717
  Serious: Yes (Death, Hospitalization)
  Sender: FDA-Public Use
  Company Number: US-KARYOPHARM-2021KPT000746

PATIENT
  Age: 6 Year
  Sex: Female
  Weight: 16.7 kg

DRUGS (5)
  1. SELINEXOR [Suspect]
     Active Substance: SELINEXOR
     Indication: NEPHROBLASTOMA
     Dosage: 30 MG, 2X/WEEK
     Route: 048
     Dates: start: 20210511, end: 20210525
  2. PREVACID [Concomitant]
     Active Substance: LANSOPRAZOLE
     Indication: NEPHROBLASTOMA
     Dosage: 15 MG, QD
     Dates: start: 20210519
  3. BACTRIM [Concomitant]
     Active Substance: SULFAMETHOXAZOLE\TRIMETHOPRIM
     Indication: NEPHROBLASTOMA
     Dosage: 6.4 ML, BID ON SATURDAY AND SUNDAY
     Dates: start: 20210223
  4. AMLODIPINE BENZOATE [Concomitant]
     Active Substance: AMLODIPINE BENZOATE
     Indication: NEPHROBLASTOMA
     Dosage: 1.6 MG, BID
     Dates: start: 20210519
  5. CYPROHEPTADINE. [Concomitant]
     Active Substance: CYPROHEPTADINE
     Indication: MALNUTRITION
     Dosage: 2 MG, BID
     Dates: start: 20210519

REACTIONS (1)
  - Nephroblastoma [Fatal]

NARRATIVE: CASE EVENT DATE: 20210525
